FAERS Safety Report 4594866-2 (Version None)
Quarter: 2005Q1

REPORT INFORMATION
  Report Type: 
  Country: None (occurrence: None)
  Receive Date: 20050223
  Receipt Date: 20050211
  Transmission Date: 20050727
  Serious: Yes (Other)
  Sender: FDA-Public Use
  Company Number: 2005028664

PATIENT
  Sex: Male
  Weight: 77.1115 kg

DRUGS (1)
  1. BENADRYL [Suspect]
     Indication: SLEEP DISORDER
     Dosage: 1 ULTRATAB DAILY, ORAL
     Route: 048
     Dates: start: 19850101, end: 20050121

REACTIONS (1)
  - PROSTATE CANCER [None]
